FAERS Safety Report 8055016-3 (Version None)
Quarter: 2012Q1

REPORT INFORMATION
  Report Type: 
  Country: None (occurrence: None)
  Receive Date: 20120119
  Receipt Date: 20120117
  Transmission Date: 20120608
  Serious: Yes (Other)
  Sender: FDA-Public Use
  Company Number: US-PFIZER INC-2012013925

PATIENT
  Sex: Female
  Weight: 68.027 kg

DRUGS (4)
  1. CELEBREX [Suspect]
     Indication: ARTHRITIS
  2. PLAVIX [Concomitant]
     Dosage: 75 MG, DAILY
  3. ACETYLSALICYLIC ACID [Concomitant]
     Dosage: 81 MG, EVERY OTHER NIGHT
  4. CELEBREX [Suspect]
     Indication: ARTHROPATHY
     Dosage: 200 MG, DAILY

REACTIONS (1)
  - MACULAR DEGENERATION [None]
